FAERS Safety Report 10984467 (Version 2)
Quarter: 2015Q2

REPORT INFORMATION
  Report Type: Spontaneous
  Country: US (occurrence: US)
  Receive Date: 20150403
  Receipt Date: 20150525
  Transmission Date: 20150821
  Serious: No
  Sender: FDA-Public Use
  Company Number: US-JNJFOC-20130603733

PATIENT
  Age: 39 Year
  Sex: Female
  Weight: 60.33 kg

DRUGS (3)
  1. IMODIUM A-D [Suspect]
     Active Substance: LOPERAMIDE HYDROCHLORIDE
     Route: 048
  2. IMODIUM A-D [Suspect]
     Active Substance: LOPERAMIDE HYDROCHLORIDE
     Indication: IRRITABLE BOWEL SYNDROME
     Dosage: 1 TO 3 TIMES; FOR OVER TEN YEARS
     Route: 048
  3. FENNEL. [Concomitant]
     Active Substance: FENNEL
     Indication: FLATULENCE
     Dosage: GROUND FENNEL SEED
     Route: 065

REACTIONS (4)
  - Product packaging issue [Unknown]
  - Drug ineffective [Unknown]
  - Abdominal pain upper [Unknown]
  - Intentional product use issue [Unknown]

NARRATIVE: CASE EVENT DATE: 20130603
